FAERS Safety Report 16760191 (Version 7)
Quarter: 2020Q1

REPORT INFORMATION
  Report Type: Spontaneous
  Country: US (occurrence: US)
  Receive Date: 20190830
  Receipt Date: 20200128
  Transmission Date: 20200409
  Serious: No
  Sender: FDA-Public Use
  Company Number: US-PFIZER INC-2019367831

PATIENT
  Age: 65 Year
  Sex: Male

DRUGS (3)
  1. CAVERJECT [Suspect]
     Active Substance: ALPROSTADIL
     Indication: ERECTILE DYSFUNCTION
     Dosage: 20 UG, UNK
  2. CAVERJECT [Suspect]
     Active Substance: ALPROSTADIL
     Dosage: UNK
  3. CAVERJECT [Suspect]
     Active Substance: ALPROSTADIL
     Dosage: 20 UG, AS NEEDED,20 MCG INTERCAVERNOSALLY PRN; TITRATE AS NEEDED

REACTIONS (1)
  - Therapeutic product effect incomplete [Recovering/Resolving]
